FAERS Safety Report 24165466 (Version 1)
Quarter: 2024Q3

REPORT INFORMATION
  Report Type: Spontaneous
  Country: FR (occurrence: FR)
  Receive Date: 20240802
  Receipt Date: 20240802
  Transmission Date: 20241016
  Serious: Yes (Other)
  Sender: AUROBINDO
  Company Number: FR-AFSSAPS-NT2024000835

PATIENT
  Age: 11 Year
  Sex: Male
  Weight: 22.5 kg

DRUGS (3)
  1. MEROPENEM [Suspect]
     Active Substance: MEROPENEM
     Indication: Burkholderia cepacia complex infection
     Dosage: 120 MILLIGRAM/KILOGRAM, ONCE A DAY
     Route: 042
     Dates: start: 20230803, end: 20230830
  2. BACTRIM [Suspect]
     Active Substance: SULFAMETHOXAZOLE\TRIMETHOPRIM
     Indication: Burkholderia cepacia complex infection
     Dosage: 8 MILLILITER, ONCE A DAY
     Route: 048
     Dates: start: 20230803, end: 20230830
  3. BACTRIM [Suspect]
     Active Substance: SULFAMETHOXAZOLE\TRIMETHOPRIM
     Indication: Bronchial disorder

REACTIONS (5)
  - Depressed level of consciousness [Recovered/Resolved]
  - Headache [Recovered/Resolved]
  - Myoclonus [Recovered/Resolved]
  - Euphoric mood [Recovered/Resolved]
  - Vomiting [Recovered/Resolved]

NARRATIVE: CASE EVENT DATE: 20230819
